FAERS Safety Report 19756595 (Version 1)
Quarter: 2021Q3

REPORT INFORMATION
  Report Type: Report from Study
  Country: US (occurrence: US)
  Receive Date: 20210827
  Receipt Date: 20210827
  Transmission Date: 20211014
  Serious: Yes (Hospitalization)
  Sender: FDA-Public Use
  Company Number: US-GILEAD-2021-0545736

PATIENT
  Age: 28 Year
  Sex: Male

DRUGS (11)
  1. TUMS [Concomitant]
     Active Substance: CALCIUM CARBONATE
  2. GABAPENTIN. [Concomitant]
     Active Substance: GABAPENTIN
  3. AZITHROMYCIN ANHYDROUS. [Concomitant]
     Active Substance: AZITHROMYCIN ANHYDROUS
  4. TOBRAMYCIN. [Concomitant]
     Active Substance: TOBRAMYCIN
  5. IRON [Concomitant]
     Active Substance: IRON
  6. MONTELUKAST SODIUM. [Concomitant]
     Active Substance: MONTELUKAST SODIUM
  7. PREDNISONE. [Concomitant]
     Active Substance: PREDNISONE
  8. VITAMIN D [VITAMIN D NOS] [Concomitant]
     Active Substance: VITAMIN D NOS
  9. AZTREONAM LYSINE [Suspect]
     Active Substance: AZTREONAM LYSINE
     Indication: CYSTIC FIBROSIS
     Dosage: 75 MG, TID
     Route: 055
  10. TACROLIMUS. [Concomitant]
     Active Substance: TACROLIMUS
  11. VITAMINS NOS [Concomitant]
     Active Substance: VITAMINS

REACTIONS (1)
  - Herpes zoster [Unknown]

NARRATIVE: CASE EVENT DATE: 20210823
